FAERS Safety Report 8443572-2 (Version None)
Quarter: 2012Q2

REPORT INFORMATION
  Report Type: 
  Country: None (occurrence: None)
  Receive Date: 20120618
  Receipt Date: 20120613
  Transmission Date: 20120825
  Serious: No
  Sender: FDA-Public Use
  Company Number: US-PFIZER INC-2012111215

PATIENT
  Sex: Female
  Weight: 53.515 kg

DRUGS (4)
  1. CELEBREX [Suspect]
     Indication: ARTHRITIS
     Dosage: 200 MG, 2X/DAY
  2. COD-LIVER OIL [Concomitant]
     Dosage: UNK, DAILY
  3. MULTI-VITAMINS [Concomitant]
     Dosage: UNK, DAILY
  4. VITAMIN D [Concomitant]
     Dosage: 5000 IU, DAILY

REACTIONS (5)
  - PRURITUS [None]
  - URTICARIA [None]
  - HYPERSENSITIVITY [None]
  - PAIN [None]
  - BLISTER [None]
